FAERS Safety Report 8776876 (Version 1)
Quarter: 2012Q4

REPORT INFORMATION
  Report Type: 
  Country: IL (occurrence: IL)
  Receive Date: 20120911
  Receipt Date: 20120911
  Transmission Date: 20130627
  Serious: Yes (Other)
  Sender: FDA-Public Use
  Company Number: IL-JNJFOC-20120902300

PATIENT
  Sex: Female

DRUGS (4)
  1. XARELTO [Suspect]
     Indication: HIP ARTHROPLASTY
     Route: 048
     Dates: start: 20120823, end: 20120825
  2. XARELTO [Suspect]
     Indication: THROMBOSIS PROPHYLAXIS
     Route: 048
     Dates: start: 20120823, end: 20120825
  3. CLEXANE [Suspect]
     Indication: HIP ARTHROPLASTY
     Dates: start: 20120826, end: 20120826
  4. CLEXANE [Suspect]
     Indication: HIP ARTHROPLASTY
     Dates: start: 20120820, end: 20120822

REACTIONS (1)
  - Deep vein thrombosis [Not Recovered/Not Resolved]
